FAERS Safety Report 17099764 (Version 1)
Quarter: 2019Q4

REPORT INFORMATION
  Report Type: Spontaneous
  Country: US (occurrence: US)
  Receive Date: 20191202
  Receipt Date: 20191202
  Transmission Date: 20200122
  Serious: No
  Sender: FDA-Public Use
  Company Number: US-CELGENEUS-USA-20191110695

PATIENT
  Age: 47 Year
  Sex: Female
  Weight: 93 kg

DRUGS (2)
  1. APREMILAST [Suspect]
     Active Substance: APREMILAST
     Indication: PSORIASIS
     Dosage: STARTER PACK
     Route: 048
     Dates: start: 20191123
  2. APREMILAST [Suspect]
     Active Substance: APREMILAST
     Dosage: 60 MILLIGRAM
     Route: 048
     Dates: start: 201911

REACTIONS (3)
  - Headache [Not Recovered/Not Resolved]
  - Muscle tightness [Not Recovered/Not Resolved]
  - Dysphagia [Not Recovered/Not Resolved]

NARRATIVE: CASE EVENT DATE: 20191123
